FAERS Safety Report 18418555 (Version 1)
Quarter: 2020Q4

REPORT INFORMATION
  Report Type: Spontaneous
  Country: US (occurrence: US)
  Receive Date: 20201023
  Receipt Date: 20201023
  Transmission Date: 20210114
  Serious: Yes (Other)
  Sender: FDA-Public Use
  Company Number: US-LUPIN PHARMACEUTICALS INC.-2020-07691

PATIENT
  Age: 33 Year
  Sex: Female

DRUGS (5)
  1. AZACITIDINE. [Suspect]
     Active Substance: AZACITIDINE
     Indication: BONE MARROW FAILURE
     Dosage: UNK 50% REDUCED DOSE
     Route: 042
  2. VENETOCLAX. [Suspect]
     Active Substance: VENETOCLAX
     Dosage: 200 MILLIGRAM DOSE ESCALATED ON DAY 2
     Route: 016
  3. AZACITIDINE. [Suspect]
     Active Substance: AZACITIDINE
     Indication: ACUTE MYELOID LEUKAEMIA
     Dosage: 37.5 MILLIGRAM/SQ. METER
     Route: 042
  4. VENETOCLAX. [Suspect]
     Active Substance: VENETOCLAX
     Dosage: 400 MILLIGRAM, QD AFTER DOSE ESCALATION
     Route: 065
  5. VENETOCLAX. [Suspect]
     Active Substance: VENETOCLAX
     Indication: ACUTE MYELOID LEUKAEMIA
     Dosage: ON DAY 1, 100 MG OF VENETOCLAX WAS ADMINISTERED AND DOSE ESCALATED TO 200 MG ON DAY 2 AND 400 MG ON
     Route: 016

REACTIONS (3)
  - Cytopenia [Recovering/Resolving]
  - Pulmonary embolism [Unknown]
  - Off label use [Unknown]
